FAERS Safety Report 8143816-0 (Version None)
Quarter: 2012Q1

REPORT INFORMATION
  Report Type: 
  Country: None (occurrence: None)
  Receive Date: 20120217
  Receipt Date: 20120211
  Transmission Date: 20120608
  Serious: Yes (Disabling, Other)
  Sender: FDA-Public Use
  Company Number: DE-PFIZER INC-2012037869

PATIENT
  Age: 45 Year
  Sex: Female

DRUGS (1)
  1. EXEMESTANE [Suspect]
     Indication: BREAST CANCER FEMALE
     Dosage: UNK
     Dates: start: 20091201

REACTIONS (3)
  - CEREBROVASCULAR ACCIDENT [None]
  - IMPAIRED WORK ABILITY [None]
  - ARTHRALGIA [None]
